FAERS Safety Report 5690160-7 (Version None)
Quarter: 2008Q2

REPORT INFORMATION
  Report Type: 
  Country: None (occurrence: None)
  Receive Date: 20080401
  Receipt Date: 20080321
  Transmission Date: 20081010
  Serious: Yes (Other)
  Sender: FDA-Public Use
  Company Number: JP-NOVOPROD-273515

PATIENT
  Age: 67 Year
  Sex: Male

DRUGS (6)
  1. LEVEMIR [Suspect]
     Indication: DRUG USE FOR UNKNOWN INDICATION
     Route: 058
     Dates: start: 20080221, end: 20080306
  2. SCOPOLAMINE BUTYLB [Concomitant]
  3. LACTOMIN [Concomitant]
  4. VOGLIBOSE [Concomitant]
  5. AMLODIPINE BESYLATE [Concomitant]
  6. ASPIRIN [Concomitant]

REACTIONS (1)
  - TRANSAMINASES INCREASED [None]
